FAERS Safety Report 23736983 (Version 1)
Quarter: 2024Q2

REPORT INFORMATION
  Report Type: Report from Study
  Country: US (occurrence: US)
  Receive Date: 20240412
  Receipt Date: 20240412
  Transmission Date: 20240716
  Serious: Yes (Hospitalization, Other)
  Sender: FDA-Public Use
  Company Number: US-ARGENX-2024-ARGX-US002489

PATIENT

DRUGS (5)
  1. VYVGART [Suspect]
     Active Substance: EFGARTIGIMOD ALFA-FCAB
     Indication: Myasthenia gravis
     Dosage: 800 MG,ONCE WEEKLY FOR 4 WEEK
     Route: 042
     Dates: start: 20220413
  2. VYVGART [Suspect]
     Active Substance: EFGARTIGIMOD ALFA-FCAB
     Dosage: 800 MG
     Route: 042
     Dates: start: 20240214, end: 20240221
  3. VYVGART [Suspect]
     Active Substance: EFGARTIGIMOD ALFA-FCAB
     Dosage: 800 MG,ONCE WEEKLY FOR 4 WEEK
     Route: 042
     Dates: start: 20240306, end: 20240320
  4. EFFEXOR [Suspect]
     Active Substance: VENLAFAXINE HYDROCHLORIDE
     Indication: Product used for unknown indication
     Route: 065
  5. ALDACTONE [Suspect]
     Active Substance: SPIRONOLACTONE
     Indication: Product used for unknown indication
     Route: 065

REACTIONS (13)
  - Blood potassium increased [Recovered/Resolved]
  - Choking [Unknown]
  - Ophthalmic herpes zoster [Recovered/Resolved]
  - Dysstasia [Unknown]
  - Walking aid user [Unknown]
  - Diplopia [Unknown]
  - Fatigue [Unknown]
  - Anxiety [Unknown]
  - Dysphagia [Unknown]
  - Movement disorder [Unknown]
  - Fatigue [Unknown]
  - Urinary tract infection [Unknown]
  - Therapeutic product effect incomplete [Unknown]

NARRATIVE: CASE EVENT DATE: 20240208
